FAERS Safety Report 4900102-7 (Version None)
Quarter: 2006Q1

REPORT INFORMATION
  Report Type: 
  Country: None (occurrence: None)
  Receive Date: 20060203
  Receipt Date: 20060125
  Transmission Date: 20060701
  Serious: Yes (Hospitalization)
  Sender: FDA-Public Use
  Company Number: FR-AVENTIS-200610278FR

PATIENT
  Age: 46 Year
  Sex: Male

DRUGS (9)
  1. RIFADIN [Suspect]
     Indication: SEPSIS
     Route: 048
     Dates: start: 20051201, end: 20051215
  2. RIFADIN [Suspect]
     Route: 048
     Dates: start: 20051219, end: 20051227
  3. NEXIUM [Concomitant]
  4. NICARDIPINE HCL [Concomitant]
  5. NITRIDERM TTS 10 MG/24 H [Concomitant]
  6. ACUPAN [Concomitant]
  7. FLAGYL ^MAY^ [Concomitant]
  8. ROCEPHIN [Concomitant]
  9. PRIMPERAN INJ [Concomitant]

REACTIONS (6)
  - COAGULATION FACTOR V LEVEL DECREASED [None]
  - COAGULATION FACTOR VII LEVEL DECREASED [None]
  - COAGULATION FACTOR X LEVEL DECREASED [None]
  - COAGULOPATHY [None]
  - PROTHROMBIN LEVEL DECREASED [None]
  - PROTHROMBIN TIME PROLONGED [None]
